FAERS Safety Report 13975923 (Version 1)
Quarter: 2017Q3

REPORT INFORMATION
  Report Type: Report from Study
  Country: US (occurrence: US)
  Receive Date: 20170914
  Receipt Date: 20170914
  Transmission Date: 20171128
  Serious: No
  Sender: FDA-Public Use
  Company Number: US-TARO-2016TAR01049

PATIENT
  Age: 50 Year
  Sex: Male
  Weight: 113.38 kg

DRUGS (1)
  1. CLOTRIMAZOLE TOPICAL SOLUTION USP 1% [Suspect]
     Active Substance: CLOTRIMAZOLE
     Indication: EAR INFECTION FUNGAL
     Dosage: 2 GTT, ONCE
     Route: 001
     Dates: start: 20161220, end: 20161220

REACTIONS (3)
  - Burning sensation [Recovered/Resolved]
  - Product use issue [Unknown]
  - Off label use [Unknown]

NARRATIVE: CASE EVENT DATE: 20161220
